FAERS Safety Report 10578389 (Version 1)
Quarter: 2014Q4

REPORT INFORMATION
  Report Type: Spontaneous
  Country: US (occurrence: None)
  Receive Date: 20141104
  Receipt Date: 20141104
  Transmission Date: 20150529
  Serious: Yes (Death, Hospitalization)
  Sender: FDA-Public Use
  Company Number: INS201407-000135

PATIENT
  Sex: Male
  Weight: 79.83 kg

DRUGS (4)
  1. NORCO (ACETAMINOPHEN, HYDROCODONE) (ACETAMINOPHEN, HYDROCODONE) [Concomitant]
  2. ATIVAN [Suspect]
     Active Substance: LORAZEPAM
  3. FENTANYL (FENTANYL) (FENTANYL) [Concomitant]
     Active Substance: FENTANYL
  4. SUBSYS [Suspect]
     Active Substance: FENTANYL
     Indication: BREAKTHROUGH PAIN
     Route: 060
     Dates: start: 20140611, end: 20140702

REACTIONS (2)
  - Respiratory distress [None]
  - Neoplasm malignant [None]
